FAERS Safety Report 15269355 (Version 1)
Quarter: 2018Q3

REPORT INFORMATION
  Report Type: Spontaneous
  Country: DE (occurrence: DE)
  Receive Date: 20180813
  Receipt Date: 20180813
  Transmission Date: 20181010
  Serious: Yes (Other)
  Sender: FDA-Public Use
  Company Number: DE-BAXTER-2018BAX020284

PATIENT
  Age: 47 Year
  Sex: Female

DRUGS (1)
  1. PHOXILIUM [Suspect]
     Active Substance: CALCIUM CL\MAGNESIUM CL\POTASSIUM CL\SODIUM BICAR\SODIUM CL\SODIUM PHOSPHATE,DIB
     Indication: CONTINUOUS HAEMODIAFILTRATION
     Route: 010

REACTIONS (4)
  - Device leakage [Unknown]
  - Device connection issue [Unknown]
  - Haemorrhage [Unknown]
  - Device issue [Unknown]

NARRATIVE: CASE EVENT DATE: 20180624
